FAERS Safety Report 23164492 (Version 1)
Quarter: 2023Q4

REPORT INFORMATION
  Report Type: Spontaneous
  Country: BR (occurrence: BR)
  Receive Date: 20231109
  Receipt Date: 20231109
  Transmission Date: 20240110
  Serious: Yes (Other)
  Sender: FDA-Public Use
  Company Number: BR-ABBOTT-2023A-1372533

PATIENT
  Sex: Male
  Weight: 28 kg

DRUGS (2)
  1. DEPAKOTE [Suspect]
     Active Substance: DIVALPROEX SODIUM
     Indication: Seizure
     Dosage: 4 IN THE MORNING AND 4 IN THE EVENING, STARTED WHEN HE TURNED 2 YEARS OLD
     Route: 048
     Dates: start: 200004
  2. DEPAKOTE [Suspect]
     Active Substance: DIVALPROEX SODIUM
     Indication: Seizure
     Dosage: 1 CAPSULE IN THE MORNING AND 1 AT NIGHT, PUTTING IT IN THE YOGURT
     Route: 048

REACTIONS (4)
  - Seizure [Recovered/Resolved]
  - Off label use [Unknown]
  - Liver disorder [Unknown]
  - Tremor [Unknown]
